FAERS Safety Report 5066377-1 (Version None)
Quarter: 2006Q3

REPORT INFORMATION
  Report Type: 
  Country: None (occurrence: None)
  Receive Date: 20060728
  Receipt Date: 20060720
  Transmission Date: 20061208
  Serious: Yes (Other)
  Sender: FDA-Public Use
  Company Number: US-2005-004582

PATIENT
  Age: 59 Year
  Sex: Female
  Weight: 73.5 kg

DRUGS (8)
  1. CLIMARA [Suspect]
     Indication: HORMONE REPLACEMENT THERAPY
     Dosage: 0.075 MG/D, CONT, TRANSDERMAL
     Route: 062
     Dates: start: 19950101
  2. PREMARIN [Suspect]
     Indication: HORMONE REPLACEMENT THERAPY
     Dosage: 2.5 MG
     Dates: start: 19850101
  3. ESTRATEST [Suspect]
     Indication: HORMONE REPLACEMENT THERAPY
  4. ESTRATEST H.S. [Suspect]
     Indication: HORMONE REPLACEMENT THERAPY
  5. ESTRACE [Suspect]
     Indication: HORMONE REPLACEMENT THERAPY
  6. PREMPRO [Suspect]
     Indication: HORMONE REPLACEMENT THERAPY
     Dosage: 0.625 /2.5 MG
  7. ESTRADERM [Suspect]
     Dates: start: 19900101
  8. LISINOPRIL [Concomitant]

REACTIONS (3)
  - METASTASES TO LARGE INTESTINE [None]
  - METASTASES TO SMALL INTESTINE [None]
  - OVARIAN CANCER METASTATIC [None]
